FAERS Safety Report 7201025-3 (Version None)
Quarter: 2010Q4

REPORT INFORMATION
  Report Type: 
  Country: None (occurrence: None)
  Receive Date: 20101214
  Receipt Date: 20101207
  Transmission Date: 20110411
  Serious: Yes (Death, Life-Threatening)
  Sender: FDA-Public Use
  Company Number: WAES 0706USA05102

PATIENT
  Age: 62 Year
  Sex: Male

DRUGS (3)
  1. HYZAAR [Suspect]
     Indication: HYPERTENSION
     Dosage: 1 TABLET/DAILY PO
     Route: 048
     Dates: start: 20070529, end: 20070625
  2. DIOVAN [Concomitant]
  3. EPADEL [Concomitant]

REACTIONS (6)
  - COLD SWEAT [None]
  - DIABETES MELLITUS [None]
  - LOSS OF CONSCIOUSNESS [None]
  - SNORING [None]
  - SUDDEN DEATH [None]
  - VISION BLURRED [None]
